FAERS Safety Report 20503607 (Version 1)
Quarter: 2022Q1

REPORT INFORMATION
  Report Type: Spontaneous
  Country: JP (occurrence: JP)
  Receive Date: 20220222
  Receipt Date: 20220222
  Transmission Date: 20220424
  Serious: Yes (Hospitalization, Other)
  Sender: FDA-Public Use
  Company Number: JP-ELI_LILLY_AND_COMPANY-JP202008004710

PATIENT
  Age: 10 Year
  Sex: Male
  Weight: 20.2 kg

DRUGS (17)
  1. ADCIRCA [Suspect]
     Active Substance: TADALAFIL
     Indication: Pulmonary arterial hypertension
     Dosage: 20 MG, DAILY
     Route: 065
     Dates: end: 20200621
  2. UPTRAVI [Suspect]
     Active Substance: SELEXIPAG
     Indication: Pulmonary arterial hypertension
     Dosage: 0.05 MG, BID
     Route: 048
     Dates: start: 20170803, end: 20170817
  3. UPTRAVI [Suspect]
     Active Substance: SELEXIPAG
     Dosage: 0.1 MG, BID
     Route: 048
     Dates: start: 20170818, end: 20170831
  4. UPTRAVI [Suspect]
     Active Substance: SELEXIPAG
     Dosage: 0.15 MG, BID
     Route: 048
     Dates: start: 20170901, end: 20170913
  5. UPTRAVI [Suspect]
     Active Substance: SELEXIPAG
     Dosage: 0.2 MG, BID
     Route: 048
     Dates: start: 20170914, end: 20170927
  6. UPTRAVI [Suspect]
     Active Substance: SELEXIPAG
     Dosage: 0.25 MG, BID
     Route: 048
     Dates: start: 20170928, end: 20171010
  7. UPTRAVI [Suspect]
     Active Substance: SELEXIPAG
     Dosage: 0.3 MG, BID
     Route: 048
     Dates: start: 20171011, end: 20171107
  8. UPTRAVI [Suspect]
     Active Substance: SELEXIPAG
     Dosage: 0.35 MG, BID
     Route: 048
     Dates: start: 20171108, end: 20171122
  9. UPTRAVI [Suspect]
     Active Substance: SELEXIPAG
     Dosage: 0.4 MG, BID
     Route: 048
     Dates: start: 20171123, end: 20180105
  10. UPTRAVI [Suspect]
     Active Substance: SELEXIPAG
     Dosage: 0.45 MG, BID
     Route: 048
     Dates: start: 20180106, end: 20180327
  11. UPTRAVI [Suspect]
     Active Substance: SELEXIPAG
     Dosage: 0.4 MG, BID
     Route: 048
     Dates: start: 20180328, end: 20200620
  12. AMBRISENTAN [Concomitant]
     Active Substance: AMBRISENTAN
     Indication: Pulmonary arterial hypertension
     Dosage: 2.5 MG, UNKNOWN
     Route: 065
  13. ENALAPRIL [Concomitant]
     Active Substance: ENALAPRIL
     Indication: Product used for unknown indication
     Dosage: 2.5 MG, UNKNOWN
     Route: 065
     Dates: start: 20180327
  14. ENALAPRIL [Concomitant]
     Active Substance: ENALAPRIL
     Dosage: 1.25 MG, UNKNOWN
     Dates: start: 20180328, end: 20180417
  15. FUROSEMIDE [Concomitant]
     Active Substance: FUROSEMIDE
     Indication: Product used for unknown indication
     Dosage: 15 MG, UNKNOWN
  16. ALDACTONE D [Concomitant]
     Indication: Product used for unknown indication
     Dosage: 10 MG, UNKNOWN
  17. HERBALS [Concomitant]
     Active Substance: HERBALS
     Indication: Product used for unknown indication
     Dosage: 3 MG, UNKNOWN

REACTIONS (5)
  - Cardiac failure congestive [Recovered/Resolved]
  - Hypotension [Recovered/Resolved]
  - Hypotension [Recovered/Resolved]
  - Diarrhoea [Not Recovered/Not Resolved]
  - Off label use [Unknown]

NARRATIVE: CASE EVENT DATE: 20180130
